FAERS Safety Report 18786754 (Version 1)
Quarter: 2021Q1

REPORT INFORMATION
  Report Type: Spontaneous
  Country: US (occurrence: US)
  Receive Date: 20210125
  Receipt Date: 20210125
  Transmission Date: 20210419
  Serious: No
  Sender: FDA-Public Use
  Company Number: None

PATIENT
  Age: 55 Year
  Sex: Female
  Weight: 64.86 kg

DRUGS (3)
  1. COSENTYX [Suspect]
     Active Substance: SECUKINUMAB
     Indication: PSORIASIS
     Dosage: INJECT 300MG (2 PENS) SUBCUTANEOUSLY EVERY WEEK FOR 5  WEEKS AS DIRECTED
     Route: 058
     Dates: start: 202007
  2. COSENTYX [Suspect]
     Active Substance: SECUKINUMAB
     Indication: BONE DENSITY ABNORMAL
     Dosage: INJECT 300MG (2 PENS) SUBCUTANEOUSLY EVERY WEEK FOR 5  WEEKS AS DIRECTED
     Route: 058
     Dates: start: 202007
  3. COSENTYX [Suspect]
     Active Substance: SECUKINUMAB
     Indication: FIBROUS DYSPLASIA OF BONE
     Dosage: INJECT 300MG (2 PENS) SUBCUTANEOUSLY EVERY WEEK FOR 5  WEEKS AS DIRECTED
     Route: 058
     Dates: start: 202007

REACTIONS (1)
  - Sinusitis [None]
